FAERS Safety Report 7279325-0 (Version None)
Quarter: 2011Q1

REPORT INFORMATION
  Report Type: 
  Country: None (occurrence: None)
  Receive Date: 20110207
  Receipt Date: 20110128
  Transmission Date: 20110831
  Serious: Yes (Hospitalization, Other)
  Sender: FDA-Public Use
  Company Number: US-MERCK-0812USA02716

PATIENT
  Age: 53 Year
  Sex: Female

DRUGS (12)
  1. FOSAMAX [Suspect]
     Route: 048
     Dates: start: 20011101, end: 20070101
  2. PROZAC [Concomitant]
     Route: 065
  3. MIDRIN [Concomitant]
     Indication: HEADACHE
     Route: 065
  4. PREMPRO [Concomitant]
     Route: 065
  5. ACTONEL [Suspect]
     Route: 065
     Dates: start: 20011119
  6. FOSAMAX [Suspect]
     Indication: OSTEOPOROSIS
     Route: 048
     Dates: start: 19991201
  7. TYLENOL EXTRA STRENGTH [Concomitant]
     Route: 065
  8. FLEXERIL [Concomitant]
     Route: 065
  9. FOSAMAX [Suspect]
     Route: 048
     Dates: start: 19990901, end: 20060101
  10. LODINE [Concomitant]
     Route: 065
  11. FIORICET [Concomitant]
     Indication: HEADACHE
     Route: 065
  12. CALTRATE + D [Concomitant]
     Route: 065

REACTIONS (45)
  - OSTEONECROSIS OF JAW [None]
  - URINARY TRACT INFECTION [None]
  - ULCER [None]
  - MAJOR DEPRESSION [None]
  - OSTEITIS [None]
  - HEADACHE [None]
  - EXCORIATION [None]
  - BONE DENSITY DECREASED [None]
  - SUBMANDIBULAR MASS [None]
  - MALAISE [None]
  - PEPTIC ULCER [None]
  - HERNIA [None]
  - BONE DISORDER [None]
  - RIB FRACTURE [None]
  - INTERVERTEBRAL DISC PROTRUSION [None]
  - OSTEOARTHRITIS [None]
  - ARTERIOSCLEROSIS [None]
  - GASTRITIS [None]
  - FATIGUE [None]
  - RECTAL HAEMORRHAGE [None]
  - RADICULOPATHY [None]
  - ABSCESS JAW [None]
  - ATRIAL FIBRILLATION [None]
  - HYPOTHYROIDISM [None]
  - SPINAL DISORDER [None]
  - SEPSIS [None]
  - CHRONIC OBSTRUCTIVE PULMONARY DISEASE [None]
  - CELLULITIS [None]
  - ARTERIAL BRUIT [None]
  - ADVERSE EVENT [None]
  - ANAEMIA [None]
  - FACET JOINT SYNDROME [None]
  - COLONIC POLYP [None]
  - SCOLIOSIS [None]
  - PANCREATITIS [None]
  - ABDOMINAL PAIN [None]
  - CERVICOBRACHIAL SYNDROME [None]
  - AORTIC DISORDER [None]
  - HAEMATURIA [None]
  - OSTEOPENIA [None]
  - AVULSION FRACTURE [None]
  - OSTEOMYELITIS [None]
  - VOMITING [None]
  - SPINAL COLUMN STENOSIS [None]
  - ROTATOR CUFF SYNDROME [None]
